FAERS Safety Report 5780512-9 (Version None)
Quarter: 2008Q2

REPORT INFORMATION
  Report Type: 
  Country: None (occurrence: None)
  Receive Date: 20080620
  Receipt Date: 20080612
  Transmission Date: 20081010
  Serious: Yes (Disabling)
  Sender: FDA-Public Use
  Company Number: BE-AVENTIS-200815666GDDC

PATIENT
  Age: 58 Year
  Sex: Female

DRUGS (3)
  1. FLUOROURACIL [Suspect]
     Indication: RECTAL CANCER
     Dosage: DOSE: 500 MG/M SUP (2) ON DAYS 15- AND DAYS 36-40
     Route: 041
  2. FLUOROURACIL [Suspect]
     Dosage: DOSE: 450 MG/M SUP (2) ON DAYS 134-138 AND 169-173
     Route: 041
  3. RADIOTHERAPY [Concomitant]
     Indication: RECTAL CANCER

REACTIONS (1)
  - NEUROPATHY PERIPHERAL [None]
